FAERS Safety Report 13005427 (Version 1)
Quarter: 2016Q4

REPORT INFORMATION
  Report Type: Spontaneous
  Country: JP (occurrence: JP)
  Receive Date: 20161207
  Receipt Date: 20161207
  Transmission Date: 20170207
  Serious: Yes (Other)
  Sender: FDA-Public Use
  Company Number: JP-ELI_LILLY_AND_COMPANY-JP201611010279

PATIENT
  Age: 34 Year
  Sex: Male

DRUGS (3)
  1. PACLITAXEL. [Suspect]
     Active Substance: PACLITAXEL
     Indication: GASTRIC CANCER STAGE IV
     Dosage: 80 MG/M2, DAY1, 8, 15 Q4W
     Dates: start: 20150601
  2. CYRAMZA [Suspect]
     Active Substance: RAMUCIRUMAB
     Indication: GASTRIC CANCER STAGE IV
     Dosage: 8 MG/KG, BIWEEKLY
     Route: 042
     Dates: start: 20150601
  3. PACLITAXEL. [Suspect]
     Active Substance: PACLITAXEL
     Dosage: 65 MG/M2,  DAY1, 8, 15 Q4W
     Route: 042
     Dates: start: 20150801

REACTIONS (4)
  - Hypoaesthesia [Unknown]
  - Arthralgia [Unknown]
  - Proteinuria [Unknown]
  - Alopecia [Unknown]

NARRATIVE: CASE EVENT DATE: 201507
